FAERS Safety Report 6543852-1 (Version None)
Quarter: 2010Q1

REPORT INFORMATION
  Report Type: 
  Country: None (occurrence: None)
  Receive Date: 20100119
  Receipt Date: 20100119
  Transmission Date: 20100710
  Serious: Yes (Hospitalization, Other)
  Sender: FDA-Public Use
  Company Number: None

PATIENT
  Age: 34 Year
  Sex: Female
  Weight: 68.0396 kg

DRUGS (1)
  1. TYLENOL [Suspect]
     Indication: HEADACHE
     Dosage: 2 PILLS EVERY 8 HOURS PO
     Route: 048
     Dates: start: 20091119, end: 20091124

REACTIONS (7)
  - ABORTION SPONTANEOUS [None]
  - DRUG EXPOSURE DURING PREGNANCY [None]
  - HEADACHE [None]
  - INFLUENZA LIKE ILLNESS [None]
  - MALAISE [None]
  - PRODUCT QUALITY ISSUE [None]
  - VOMITING IN PREGNANCY [None]
